FAERS Safety Report 7655684-1 (Version None)
Quarter: 2011Q3

REPORT INFORMATION
  Report Type: 
  Country: None (occurrence: None)
  Receive Date: 20110801
  Receipt Date: 20110715
  Transmission Date: 20111222
  Serious: Yes (Hospitalization)
  Sender: FDA-Public Use
  Company Number: 2011MA008948

PATIENT
  Age: 65 Year
  Sex: Male
  Weight: 113 kg

DRUGS (4)
  1. METOPROLOL TARTRATE [Suspect]
     Indication: RENAL FAILURE
     Dosage: 150 MG;QD
  2. BENDROFLUMETHIAZID (NO PREF. NAME) [Suspect]
     Indication: RENAL FAILURE
     Dosage: 2.5 MG;QD
  3. FUROSEMIDE [Suspect]
     Indication: RENAL FAILURE ACUTE
     Dosage: 1500 MG;QD
  4. SPIRONOLACTONE [Suspect]
     Indication: HYPERTENSION
     Dosage: 50 MG;QD;

REACTIONS (9)
  - PULMONARY CONGESTION [None]
  - CARDIOMEGALY [None]
  - ABDOMINAL DISTENSION [None]
  - HYPOVOLAEMIA [None]
  - HEPATIC STEATOSIS [None]
  - BLOOD GLUCOSE INCREASED [None]
  - ACUTE PRERENAL FAILURE [None]
  - LEFT VENTRICULAR DYSFUNCTION [None]
  - GLYCOSYLATED HAEMOGLOBIN INCREASED [None]
